FAERS Safety Report 6260695-7 (Version None)
Quarter: 2009Q3

REPORT INFORMATION
  Report Type: 
  Country: None (occurrence: None)
  Receive Date: 20090708
  Receipt Date: 20090619
  Transmission Date: 20100115
  Serious: Yes (Other)
  Sender: FDA-Public Use
  Company Number: PL-GENENTECH-286232

PATIENT
  Age: 58 Year
  Sex: Male

DRUGS (2)
  1. XOLAIR [Suspect]
     Indication: ASTHMA
     Dosage: 300 MG, 1/MONTH
     Route: 065
  2. STEROID (UNK INGREDIENTS) [Concomitant]
     Indication: DRUG USE FOR UNKNOWN INDICATION

REACTIONS (5)
  - DYSPNOEA [None]
  - ERYTHEMA [None]
  - MYCOTOXICOSIS [None]
  - NAUSEA [None]
  - VOMITING [None]
